FAERS Safety Report 8003908-3 (Version None)
Quarter: 2011Q4

REPORT INFORMATION
  Report Type: 
  Country: None (occurrence: None)
  Receive Date: 20111222
  Receipt Date: 20111214
  Transmission Date: 20120403
  Serious: Yes (Other)
  Sender: FDA-Public Use
  Company Number: US-CELGENEUS-163-21880-11111307

PATIENT
  Sex: Female
  Weight: 71.278 kg

DRUGS (13)
  1. LEVOTHYROXINE SODIUM [Concomitant]
     Dosage: 50 MICROGRAM
     Route: 065
  2. REVLIMID [Suspect]
     Indication: MULTIPLE MYELOMA
     Dosage: 15 MILLIGRAM
     Route: 048
     Dates: start: 20100901, end: 20110805
  3. LASIX [Concomitant]
     Dosage: 40 MILLIGRAM
     Route: 065
  4. VELCADE [Concomitant]
     Route: 065
     Dates: end: 20110805
  5. LOSARTAN POTASSIUM [Concomitant]
     Dosage: 50 MILLIGRAM
     Route: 065
  6. REVLIMID [Suspect]
     Dosage: 15 MILLIGRAM
     Route: 048
     Dates: start: 20110810
  7. REVLIMID [Suspect]
     Dosage: 5 MILLIGRAM
     Route: 048
     Dates: start: 20111107
  8. DECADRON [Suspect]
     Route: 065
     Dates: start: 20110718, end: 20110805
  9. ALLOPURINOL [Concomitant]
     Dosage: 300 MILLIGRAM
     Route: 065
  10. PANTOPRAZOLE [Concomitant]
     Dosage: 40 MILLIGRAM
     Route: 065
  11. ACYCLOVIR [Concomitant]
     Dosage: 400 MILLIGRAM
     Route: 065
  12. DECADRON [Suspect]
     Dosage: 4 MILLIGRAM
     Route: 065
     Dates: end: 20111010
  13. HUMALOG [Concomitant]
     Route: 065

REACTIONS (2)
  - DRUG INTOLERANCE [None]
  - DEMENTIA [None]
